FAERS Safety Report 13065451 (Version 1)
Quarter: 2016Q4

REPORT INFORMATION
  Report Type: Spontaneous
  Country: GB (occurrence: GB)
  Receive Date: 20161227
  Receipt Date: 20161227
  Transmission Date: 20170207
  Serious: Yes (Other)
  Sender: FDA-Public Use
  Company Number: GB-PFIZER INC-2016597284

PATIENT
  Age: 66 Year
  Sex: Female
  Weight: 81 kg

DRUGS (30)
  1. BETNOVATE [Concomitant]
     Active Substance: BETAMETHASONE
     Dosage: 1 DF, 2X/DAY
     Dates: start: 20160509
  2. NITROLINGUAL [Concomitant]
     Active Substance: NITROGLYCERIN
     Dosage: 1 DF, UNK
     Dates: start: 20160509
  3. XARELTO [Concomitant]
     Active Substance: RIVAROXABAN
     Dosage: 1 DF, 1X/DAY
     Dates: start: 20160509
  4. DOXYCYCLINE MONOHYDRATE [Suspect]
     Active Substance: DOXYCYCLINE
     Dosage: UNK
     Dates: start: 20161213
  5. DILTIAZEM HYDROCHLORIDE. [Concomitant]
     Active Substance: DILTIAZEM HYDROCHLORIDE
     Dosage: 1 DF, 1X/DAY
     Dates: start: 20160509
  6. BENDROFLUMETHIAZIDE [Concomitant]
     Active Substance: BENDROFLUMETHIAZIDE
     Dosage: 1 DF, 1X/DAY (EACH MORNING).
     Dates: start: 20160509
  7. COLPERMIN [Concomitant]
     Dosage: 1 DF, 3X/DAY
     Dates: start: 20160509
  8. HYOSCINE BUTYLBROMIDE [Concomitant]
     Active Substance: BUTYLSCOPOLAMINE
     Dosage: 1 DF, UNK
     Dates: start: 20160822
  9. NIZORAL [Concomitant]
     Active Substance: KETOCONAZOLE
     Dosage: UNK
     Dates: start: 20161111, end: 20161112
  10. OPTIVE [Concomitant]
     Active Substance: CARBOXYMETHYLCELLULOSE SODIUM\GLYCERIN
     Dosage: 1 DF, 4X/DAY
     Dates: start: 20160509
  11. SALBUTAMOL [Concomitant]
     Active Substance: ALBUTEROL
     Dosage: 2 DF, UNK
     Route: 055
     Dates: start: 20160509
  12. E45 [Concomitant]
     Active Substance: LANOLIN\LIGHT MINERAL OIL\PARAFFIN
     Dosage: 1 DF, UNK
     Route: 061
     Dates: start: 20160509
  13. FORCEVAL /07405301/ [Concomitant]
     Active Substance: FOLIC ACID\IRON\MINERALS\VITAMINS
     Dosage: 1 DF, 1X/DAY
     Dates: start: 20160509
  14. LOPERAMIDE [Concomitant]
     Active Substance: LOPERAMIDE
     Dosage: 1 DF, 4X/DAY
     Dates: start: 20160706
  15. RAMIPRIL. [Concomitant]
     Active Substance: RAMIPRIL
     Dosage: 1 DF, 2X/DAY
     Dates: start: 20160509
  16. CLOTRIMAZOLE. [Concomitant]
     Active Substance: CLOTRIMAZOLE
     Dosage: 1 DF, 2-3 TIMES DAILY
     Route: 061
     Dates: start: 20161018, end: 20161115
  17. DICLOFENAC DIETHYLAMMONIUM [Concomitant]
     Dosage: 1 DF, 3X/DAY
     Route: 061
     Dates: start: 20161018, end: 20161115
  18. MOMETASONE [Concomitant]
     Active Substance: MOMETASONE
     Dosage: 2 DF, 1X/DAY
     Dates: start: 20160509
  19. OMEPRAZOLE. [Concomitant]
     Active Substance: OMEPRAZOLE
     Dosage: 2 DF, 1X/DAY
     Dates: start: 20160822
  20. PARACETAMOL [Concomitant]
     Active Substance: ACETAMINOPHEN
     Dosage: 2 DF, 3X/DAY (AT 8AM, 2PM AND 6PM)
     Dates: start: 20160509
  21. QVAR [Concomitant]
     Active Substance: BECLOMETHASONE DIPROPIONATE
     Dosage: 1 OR 2 DOSE, 2X/DAY
     Route: 055
     Dates: start: 20160509
  22. ROSUVASTATIN. [Concomitant]
     Active Substance: ROSUVASTATIN
     Dosage: 0.5 DF, 1X/DAY
     Dates: start: 20160509
  23. CHEMYDUR XL [Concomitant]
     Dosage: 1 DF, 1X/DAY (EACH MORNING)
     Dates: start: 20160509
  24. CHLORPHENAMINE [Concomitant]
     Active Substance: CHLORPHENIRAMINE MALEATE
     Dosage: 1 DF, EVERY 4-6 HOURS
     Dates: start: 20160509
  25. NAPROXEN. [Concomitant]
     Active Substance: NAPROXEN
     Dosage: 1 DF, 2X/DAY
     Dates: start: 20160902
  26. CETIRIZINE [Concomitant]
     Active Substance: CETIRIZINE HYDROCHLORIDE
     Dosage: 1 DF, 1X/DAY
     Dates: start: 20160509
  27. FULTIUM D3 [Concomitant]
     Dosage: 1 DF, 1X/DAY
     Dates: start: 20160509
  28. LACRI-LUBE [Concomitant]
     Dosage: 1 DF, UNK
     Route: 061
     Dates: start: 20160509
  29. MOVELAT /00479601/ [Concomitant]
     Dosage: 1 DF, 3X/DAY
     Route: 061
     Dates: start: 20161122, end: 20161127
  30. OTOMIZE [Concomitant]
     Active Substance: DEXAMETHASONE\NEOMYCIN SULFATE
     Dosage: 1 DF, 3X/DAY
     Dates: start: 20161101, end: 20161102

REACTIONS (2)
  - Contusion [Recovering/Resolving]
  - Ecchymosis [Unknown]

NARRATIVE: CASE EVENT DATE: 20161213
